FAERS Safety Report 8365873-9 (Version None)
Quarter: 2012Q2

REPORT INFORMATION
  Report Type: 
  Country: None (occurrence: None)
  Receive Date: 20120515
  Receipt Date: 20120502
  Transmission Date: 20120825
  Serious: Yes (Death, Other)
  Sender: FDA-Public Use
  Company Number: FK201201285

PATIENT
  Age: 57 Year
  Sex: Male
  Weight: 85 kg

DRUGS (6)
  1. DOMPERIDONE (DOMPERIDONE) [Concomitant]
  2. CYCLIZINE (CYCLIZINE) [Concomitant]
  3. ZOPICLONE (ZOPICLONE) [Concomitant]
  4. ONDANSETRON [Suspect]
     Indication: VOMITING
     Dosage: 8 MG, INTRAMUSCULAR
     Route: 030
     Dates: start: 20110917
  5. OXYCODONE HCL [Concomitant]
  6. FENTANYL [Concomitant]

REACTIONS (8)
  - SUDDEN DEATH [None]
  - CIRCULATORY COLLAPSE [None]
  - NECK PAIN [None]
  - FEELING HOT [None]
  - RESUSCITATION [None]
  - DRUG HYPERSENSITIVITY [None]
  - TACHYCARDIA [None]
  - BRADYCARDIA [None]
